FAERS Safety Report 10644907 (Version 1)
Quarter: 2014Q4

REPORT INFORMATION
  Report Type: Spontaneous
  Country: TR (occurrence: TR)
  Receive Date: 20141211
  Receipt Date: 20141211
  Transmission Date: 20150529
  Serious: Yes (Other)
  Sender: FDA-Public Use
  Company Number: TR-ACCORD-027493

PATIENT
  Age: 55 Year
  Sex: Male

DRUGS (1)
  1. MITOMYCIN. [Suspect]
     Active Substance: MITOMYCIN
     Indication: PTERYGIUM

REACTIONS (1)
  - Scleral thinning [Recovered/Resolved]
